FAERS Safety Report 13163202 (Version 1)
Quarter: 2017Q1

REPORT INFORMATION
  Report Type: Spontaneous
  Country: US (occurrence: US)
  Receive Date: 20170125
  Receipt Date: 20170125
  Transmission Date: 20170428
  Serious: No
  Sender: FDA-Public Use
  Company Number: None

PATIENT
  Age: 68 Year
  Sex: Male
  Weight: 90 kg

DRUGS (3)
  1. GEMFIBROZIL 600MG TAB [Suspect]
     Active Substance: GEMFIBROZIL
     Indication: HIGH DENSITY LIPOPROTEIN INCREASED
     Dosage: ?          QUANTITY:2 TABLET(S);?
     Route: 048
  2. LISINOPRIL. [Concomitant]
     Active Substance: LISINOPRIL
  3. XARELTO [Concomitant]
     Active Substance: RIVAROXABAN

REACTIONS (3)
  - Fatigue [None]
  - Muscle spasms [None]
  - Memory impairment [None]

NARRATIVE: CASE EVENT DATE: 20170124
